FAERS Safety Report 13122052 (Version 2)
Quarter: 2017Q1

REPORT INFORMATION
  Report Type: Report from Study
  Country: GB (occurrence: GB)
  Receive Date: 20170117
  Receipt Date: 20170206
  Transmission Date: 20170428
  Serious: Yes (Other)
  Sender: FDA-Public Use
  Company Number: GB-JNJFOC-20160713050

PATIENT
  Sex: Female

DRUGS (1)
  1. STELARA [Suspect]
     Active Substance: USTEKINUMAB
     Indication: PSORIASIS
     Route: 058

REACTIONS (9)
  - Constipation [Unknown]
  - Skin exfoliation [Unknown]
  - Drug ineffective [Unknown]
  - Tooth infection [Unknown]
  - Syringe issue [Unknown]
  - Incorrect dose administered [Unknown]
  - Pain in extremity [Unknown]
  - Mouth ulceration [Unknown]
  - Skin fissures [Unknown]
